FAERS Safety Report 25230089 (Version 1)
Quarter: 2025Q2

REPORT INFORMATION
  Report Type: Spontaneous
  Country: KR (occurrence: KR)
  Receive Date: 20250423
  Receipt Date: 20250423
  Transmission Date: 20250716
  Serious: Yes (Hospitalization)
  Sender: ASTELLAS
  Company Number: KR-ASTELLAS-2025-AER-021631

PATIENT
  Sex: Male

DRUGS (1)
  1. XTANDI [Suspect]
     Active Substance: ENZALUTAMIDE
     Indication: Prostate cancer
     Dosage: 2 CAPSULES ONCE A DAY
     Route: 065
     Dates: end: 2025

REACTIONS (2)
  - Dysphagia [Unknown]
  - Underdose [Unknown]
